FAERS Safety Report 5973902-2 (Version None)
Quarter: 2008Q4

REPORT INFORMATION
  Report Type: 
  Country: None (occurrence: None)
  Receive Date: 20081125
  Receipt Date: 20051110
  Transmission Date: 20090506
  Serious: Yes (Hospitalization)
  Sender: FDA-Public Use
  Company Number: 2008AL011716

PATIENT
  Age: 71 Year
  Sex: Female

DRUGS (2)
  1. TICLOPIDINE HYDROCHLORIDE [Suspect]
     Indication: CORONARY ARTERIAL STENT INSERTION
     Dosage: 200 MG;QD
  2. ASPIRIN [Concomitant]

REACTIONS (4)
  - ANGINA UNSTABLE [None]
  - IN-STENT CORONARY ARTERY RESTENOSIS [None]
  - OPERATIVE HAEMORRHAGE [None]
  - POST PROCEDURAL HAEMORRHAGE [None]
